FAERS Safety Report 6908166-6 (Version None)
Quarter: 2010Q3

REPORT INFORMATION
  Report Type: 
  Country: None (occurrence: None)
  Receive Date: 20100805
  Receipt Date: 20100802
  Transmission Date: 20110219
  Serious: Yes (Other)
  Sender: FDA-Public Use
  Company Number: US-ROXANE LABORATORIES, INC.-2010-RO-00949RO

PATIENT
  Age: 35 Year
  Sex: Female

DRUGS (11)
  1. CYCLOPHOSPHAMIDE [Suspect]
     Indication: CHEMOTHERAPY
  2. CARMUSTINE [Suspect]
     Indication: CHEMOTHERAPY
  3. ETOPOSIDE [Suspect]
     Indication: CHEMOTHERAPY
  4. VANCOMYCIN [Suspect]
     Indication: MUCOSAL INFLAMMATION
  5. VANCOMYCIN [Suspect]
     Indication: FEBRILE NEUTROPENIA
  6. VORICONAZOLE [Suspect]
     Indication: MUCOSAL INFLAMMATION
  7. VORICONAZOLE [Suspect]
     Indication: FEBRILE NEUTROPENIA
  8. CEFEPIME [Suspect]
     Indication: MUCOSAL INFLAMMATION
  9. CEFEPIME [Suspect]
     Indication: FEBRILE NEUTROPENIA
  10. SULFAMETHOXAZOLE AND TRIMETHOPRIM [Suspect]
     Indication: PROPHYLAXIS
  11. ACYCLOVIR [Suspect]
     Indication: PROPHYLAXIS

REACTIONS (2)
  - FEBRILE NEUTROPENIA [None]
  - TOXIC SKIN ERUPTION [None]
